FAERS Safety Report 8579190-5 (Version None)
Quarter: 2012Q3

REPORT INFORMATION
  Report Type: 
  Country: None (occurrence: None)
  Receive Date: 20120808
  Receipt Date: 20120806
  Transmission Date: 20120928
  Serious: No
  Sender: FDA-Public Use
  Company Number: US-PFIZER INC-2012191132

PATIENT
  Age: 60 Year
  Sex: Female
  Weight: 45.351 kg

DRUGS (3)
  1. PREMARIN [Suspect]
     Indication: MENOPAUSAL DISORDER
  2. PREMARIN [Suspect]
     Indication: HORMONE REPLACEMENT THERAPY
     Dosage: 0.625 MG, 1X/DAY
     Route: 067
     Dates: start: 20090101, end: 20120701
  3. PREMARIN [Suspect]
     Indication: VULVOVAGINAL DRYNESS

REACTIONS (6)
  - BURNING SENSATION [None]
  - APPLICATION SITE HYPERSENSITIVITY [None]
  - DRUG HYPERSENSITIVITY [None]
  - PRURITUS [None]
  - FUNGAL INFECTION [None]
  - ERYTHEMA [None]
